FAERS Safety Report 8393273-4 (Version None)
Quarter: 2012Q2

REPORT INFORMATION
  Report Type: 
  Country: None (occurrence: None)
  Receive Date: 20120529
  Receipt Date: 20120521
  Transmission Date: 20120825
  Serious: Yes (Other)
  Sender: FDA-Public Use
  Company Number: US-ROCHE-1002343

PATIENT
  Age: 59 Year
  Sex: Male
  Weight: 88.2 kg

DRUGS (5)
  1. INOTUZUMAB OZOGAMICIN [Suspect]
     Indication: DIFFUSE LARGE B-CELL LYMPHOMA
     Route: 042
     Dates: start: 20100301, end: 20100720
  2. ETOPOSIDE [Concomitant]
     Dates: start: 20100903, end: 20100906
  3. CYTARABINE [Concomitant]
     Dates: start: 20100903, end: 20100906
  4. MABTHERA [Suspect]
     Indication: DIFFUSE LARGE B-CELL LYMPHOMA
     Dates: start: 20100301, end: 20100720
  5. MELPHALAN HYDROCHLORIDE [Concomitant]
     Dates: start: 20100907

REACTIONS (1)
  - ENGRAFT FAILURE [None]
